FAERS Safety Report 5895333-6 (Version None)
Quarter: 2008Q3

REPORT INFORMATION
  Report Type: 
  Country: None (occurrence: None)
  Receive Date: 20080820
  Receipt Date: 20080820
  Transmission Date: 20090109
  Serious: Yes (Other)
  Sender: FDA-Public Use
  Company Number: None

PATIENT
  Age: 53 Year
  Sex: Male
  Weight: 99.7913 kg

DRUGS (2)
  1. CREST PRO HEALTH PROCTOR + GAMBLE [Suspect]
     Indication: ANTIBIOTIC PROPHYLAXIS
     Dosage: 4 OZ TWICE DAILY PO
     Route: 048
     Dates: start: 20080314, end: 20080818
  2. CREST PRO HEALTH PROCTOR + GAMBLE [Suspect]
     Indication: PERIODONTAL OPERATION
     Dosage: 4 OZ TWICE DAILY PO
     Route: 048
     Dates: start: 20080314, end: 20080818

REACTIONS (1)
  - TOOTH DISCOLOURATION [None]
